FAERS Safety Report 5236397-2 (Version None)
Quarter: 2007Q1

REPORT INFORMATION
  Report Type: 
  Country: None (occurrence: None)
  Receive Date: 20061208
  Receipt Date: 20060215
  Transmission Date: 20070707
  Serious: Yes (Other)
  Sender: FDA-Public Use
  Company Number: 2005UW14982

PATIENT
  Sex: Female

DRUGS (2)
  1. CRESTOR [Suspect]
  2. OTHER MEDICATIONS [Concomitant]

REACTIONS (1)
  - HAEMATURIA [None]
